FAERS Safety Report 8701571 (Version 3)
Quarter: 2013Q1

REPORT INFORMATION
  Report Type: Report from Study
  Country: US (occurrence: US)
  Receive Date: 20120803
  Receipt Date: 20130121
  Transmission Date: 20140127
  Serious: Yes (Death)
  Sender: FDA-Public Use
  Company Number: US-BIOGENIDEC-2012BI026932

PATIENT
  Age: 53 Year
  Sex: Male

DRUGS (5)
  1. TYSABRI [Suspect]
     Indication: MULTIPLE SCLEROSIS
     Route: 042
     Dates: start: 20080408, end: 20120626
  2. BACLOFEN [Concomitant]
     Indication: MUSCLE SPASTICITY
     Dates: start: 20090911
  3. CYMBALTA [Concomitant]
     Indication: AFFECTIVE DISORDER
     Dates: start: 20100813
  4. AMPYRA [Concomitant]
     Indication: GAIT DISTURBANCE
     Dates: start: 20100813
  5. ABILIFY [Concomitant]
     Indication: AFFECTIVE DISORDER
     Dates: start: 201101

REACTIONS (1)
  - Completed suicide [Fatal]
